FAERS Safety Report 6215983-7 (Version None)
Quarter: 2009Q2

REPORT INFORMATION
  Report Type: 
  Country: None (occurrence: None)
  Receive Date: 20090605
  Receipt Date: 20090604
  Transmission Date: 20091009
  Serious: Yes (Death)
  Sender: FDA-Public Use
  Company Number: US-ASTRAZENECA-2009UW14211

PATIENT
  Age: 55 Year
  Sex: Female

DRUGS (1)
  1. NEXIUM [Suspect]
     Route: 042

REACTIONS (2)
  - CARDIOMEGALY [None]
  - INFLUENZA [None]
